FAERS Safety Report 21786941 (Version 1)
Quarter: 2022Q4

REPORT INFORMATION
  Report Type: Spontaneous
  Country: DE (occurrence: DE)
  Receive Date: 20221228
  Receipt Date: 20221228
  Transmission Date: 20230113
  Serious: Yes (Other)
  Sender: FDA-Public Use
  Company Number: DE-BAXTER-2022BAX031279

PATIENT

DRUGS (33)
  1. VENETOCLAX [Suspect]
     Active Substance: VENETOCLAX
     Indication: Plasma cell myeloma
     Route: 050
  2. CYCLOPHOSPHAMIDE [Suspect]
     Active Substance: CYCLOPHOSPHAMIDE
     Indication: Plasma cell myeloma
     Dosage: FIRST LINE TREATMENT
     Route: 050
     Dates: start: 20130924, end: 20140214
  3. CYCLOPHOSPHAMIDE [Suspect]
     Active Substance: CYCLOPHOSPHAMIDE
     Indication: Plasma cell myeloma
     Dosage: DARA-KTD-PACE REGIMEN
     Route: 050
  4. LENALIDOMIDE [Suspect]
     Active Substance: LENALIDOMIDE
     Indication: Plasma cell myeloma
     Dosage: THIRD LINE TREATMENT
     Route: 050
     Dates: start: 20180223, end: 20180413
  5. LENALIDOMIDE [Suspect]
     Active Substance: LENALIDOMIDE
     Indication: Plasma cell myeloma
     Dosage: SECOND LINE TREATMENT
     Route: 050
     Dates: start: 20160426, end: 20170707
  6. DARATUMUMAB [Suspect]
     Active Substance: DARATUMUMAB
     Indication: Plasma cell myeloma
     Dosage: MOST RECENT LINE TREATMENT
     Route: 050
     Dates: start: 20221101, end: 20221122
  7. DARATUMUMAB [Suspect]
     Active Substance: DARATUMUMAB
     Indication: Plasma cell myeloma
     Dosage: THIRD LINE TREATMENT
     Route: 050
     Dates: start: 20180223, end: 20180413
  8. DARATUMUMAB [Suspect]
     Active Substance: DARATUMUMAB
     Indication: Plasma cell myeloma
     Dosage: FIFTH LINE TREATMENT
     Route: 050
     Dates: start: 20190114, end: 20190715
  9. DARATUMUMAB [Suspect]
     Active Substance: DARATUMUMAB
     Indication: Plasma cell myeloma
     Dosage: FOURTH LINE TREATMENT
     Route: 050
     Dates: start: 20180511, end: 20181210
  10. DARATUMUMAB [Suspect]
     Active Substance: DARATUMUMAB
     Indication: Plasma cell myeloma
     Dosage: DARA-KTD-PACE REGIMEN
     Route: 050
  11. CARFILZOMIB [Suspect]
     Active Substance: CARFILZOMIB
     Indication: Plasma cell myeloma
     Dosage: DARA-KTD-PACE REGIMEN
     Route: 050
  12. CARFILZOMIB [Suspect]
     Active Substance: CARFILZOMIB
     Indication: Plasma cell myeloma
     Dosage: SECOND LINE TREATMENT
     Route: 050
     Dates: start: 20160426, end: 20170707
  13. CARFILZOMIB [Suspect]
     Active Substance: CARFILZOMIB
     Indication: Plasma cell myeloma
     Dosage: SIXTH LINE TREATMENT
     Route: 050
     Dates: start: 20190812, end: 20190930
  14. THALIDOMIDE [Suspect]
     Active Substance: THALIDOMIDE
     Indication: Plasma cell myeloma
     Dosage: DARA-KTD-PACE REGIMEN
     Route: 050
  15. ADRIAMYCIN [Suspect]
     Active Substance: DOXORUBICIN HYDROCHLORIDE
     Indication: Plasma cell myeloma
     Dosage: DARA-KTD-PACE REGIMEN
     Route: 050
  16. BENDAMUSTINE [Suspect]
     Active Substance: BENDAMUSTINE
     Indication: Plasma cell myeloma
     Route: 050
  17. DEXAMETHASONE [Suspect]
     Active Substance: DEXAMETHASONE
     Indication: Plasma cell myeloma
     Dosage: THIRD LINE TREATMENT
     Route: 050
     Dates: start: 20180223, end: 20180413
  18. DEXAMETHASONE [Suspect]
     Active Substance: DEXAMETHASONE
     Indication: Plasma cell myeloma
     Dosage: DARA-KTD-PACE REGIMEN
     Route: 050
  19. DEXAMETHASONE [Suspect]
     Active Substance: DEXAMETHASONE
     Indication: Plasma cell myeloma
     Dosage: FOURTH LINE TREATMENT
     Route: 050
     Dates: start: 20180511, end: 20181210
  20. DEXAMETHASONE [Suspect]
     Active Substance: DEXAMETHASONE
     Indication: Plasma cell myeloma
     Dosage: SECOND LINE TREATMENT
     Route: 050
     Dates: start: 20160426, end: 20170707
  21. DEXAMETHASONE [Suspect]
     Active Substance: DEXAMETHASONE
     Indication: Plasma cell myeloma
     Dosage: FIFTH LINE TREATMENT
     Route: 050
     Dates: start: 20190114, end: 20190715
  22. DEXAMETHASONE [Suspect]
     Active Substance: DEXAMETHASONE
     Indication: Plasma cell myeloma
     Dosage: SIXTH LINE TREATMENT
     Route: 050
     Dates: start: 20190812, end: 20190930
  23. DEXAMETHASONE [Suspect]
     Active Substance: DEXAMETHASONE
     Indication: Plasma cell myeloma
     Dosage: FIRST LINE TREATMENT
     Route: 050
     Dates: start: 20130924, end: 20140214
  24. DEXAMETHASONE [Suspect]
     Active Substance: DEXAMETHASONE
     Indication: Plasma cell myeloma
     Dosage: MOST RECENT LINE TREATMENT
     Route: 050
     Dates: start: 20221101, end: 20221122
  25. ISATUXIMAB [Suspect]
     Active Substance: ISATUXIMAB
     Indication: Plasma cell myeloma
     Route: 050
  26. PLATINUM [Suspect]
     Active Substance: PLATINUM
     Indication: Plasma cell myeloma
     Dosage: DARA-KTD-PACE REGIMEN
     Route: 050
  27. ETOPOSIDE [Suspect]
     Active Substance: ETOPOSIDE
     Indication: Plasma cell myeloma
     Dosage: DARA-KTD-PACE REGIMEN
     Route: 050
  28. POMALIDOMIDE [Suspect]
     Active Substance: POMALIDOMIDE
     Indication: Plasma cell myeloma
     Dosage: MOST RECENT LINE TREATMENT
     Route: 050
     Dates: start: 20221101, end: 20221122
  29. POMALIDOMIDE [Suspect]
     Active Substance: POMALIDOMIDE
     Indication: Plasma cell myeloma
     Dosage: FIFTH LINE TREATMENT
     Route: 050
     Dates: start: 20190114, end: 20190715
  30. BORTEZOMIB [Suspect]
     Active Substance: BORTEZOMIB
     Indication: Plasma cell myeloma
     Dosage: FOURT LINE TREATMENT
     Route: 050
     Dates: start: 20180511, end: 20181210
  31. BORTEZOMIB [Suspect]
     Active Substance: BORTEZOMIB
     Indication: Plasma cell myeloma
     Dosage: UNK
     Route: 050
  32. BORTEZOMIB [Suspect]
     Active Substance: BORTEZOMIB
     Indication: Plasma cell myeloma
     Dosage: FIRST LINE TREATMENT
     Route: 050
     Dates: start: 20130924, end: 20140214
  33. MELPHALAN [Suspect]
     Active Substance: MELPHALAN
     Indication: Plasma cell myeloma
     Dosage: FIRST LINE TREATMENT
     Route: 050
     Dates: start: 20130924, end: 20140214

REACTIONS (2)
  - Plasma cell myeloma refractory [Unknown]
  - Disease progression [Unknown]
